FAERS Safety Report 8120203-2 (Version None)
Quarter: 2012Q1

REPORT INFORMATION
  Report Type: 
  Country: None (occurrence: None)
  Receive Date: 20120207
  Receipt Date: 20120131
  Transmission Date: 20120608
  Serious: Yes (Other)
  Sender: FDA-Public Use
  Company Number: PHHY2011JP92404

PATIENT
  Age: 73 Year
  Sex: Male

DRUGS (3)
  1. SANDOSTATIN LAR [Suspect]
     Dosage: 20 MG, DAILY
     Route: 030
     Dates: start: 20111024
  2. SANDOSTATIN LAR [Suspect]
     Indication: CARCINOID SYNDROME
     Dosage: 20 MG, DIALY
     Route: 030
     Dates: start: 20110314, end: 20110704
  3. SANDOSTATIN LAR [Suspect]
     Dosage: 30 MG, DAILY
     Route: 030
     Dates: start: 20110801, end: 20110926

REACTIONS (3)
  - SPINAL COLUMN STENOSIS [None]
  - MYALGIA [None]
  - DRY MOUTH [None]
